FAERS Safety Report 15772035 (Version 4)
Quarter: 2019Q1

REPORT INFORMATION
  Report Type: Spontaneous
  Country: JP (occurrence: JP)
  Receive Date: 20181228
  Receipt Date: 20190314
  Transmission Date: 20190417
  Serious: Yes (Hospitalization)
  Sender: FDA-Public Use
  Company Number: JP-ALLERGAN-1859708US

PATIENT
  Sex: Female

DRUGS (12)
  1. DEPAKENE-R [Concomitant]
     Active Substance: VALPROATE SODIUM
     Dosage: 200 MG, BID (MORNING AND EVENING)
     Route: 065
     Dates: start: 20171020
  2. LYRICA [Concomitant]
     Active Substance: PREGABALIN
     Dosage: 75 MG, QPM
     Dates: start: 20171020
  3. BOTOX [Suspect]
     Active Substance: ONABOTULINUMTOXINA
     Indication: MUSCLE TWITCHING
     Dosage: UNK, SINGLE
     Route: 030
     Dates: start: 20170713, end: 20170713
  4. LUNESTA [Concomitant]
     Active Substance: ESZOPICLONE
     Dosage: 1 MG, QD (BEFORE BEDTIME)
     Route: 065
     Dates: start: 20180427
  5. BOTOX [Suspect]
     Active Substance: ONABOTULINUMTOXINA
     Dosage: UNK, SINGLE
     Route: 030
     Dates: start: 20140212, end: 20140212
  6. BOTOX [Suspect]
     Active Substance: ONABOTULINUMTOXINA
     Dosage: UNK, SINGLE
     Route: 030
     Dates: start: 20120726, end: 20120726
  7. BOTOX [Suspect]
     Active Substance: ONABOTULINUMTOXINA
     Dosage: UNK, SINGLE
     Route: 030
     Dates: start: 20111019, end: 20111019
  8. DIOVAN [Concomitant]
     Active Substance: VALSARTAN
     Dosage: 40 MG, QAM
     Route: 065
     Dates: start: 20170919
  9. BOTOX [Suspect]
     Active Substance: ONABOTULINUMTOXINA
     Dosage: UNK, SINGLE
     Route: 030
     Dates: start: 20150205, end: 20150205
  10. LYRICA [Concomitant]
     Active Substance: PREGABALIN
     Dosage: 150 MG, QAM
     Route: 065
     Dates: start: 20171020
  11. LIPITOR [Concomitant]
     Active Substance: ATORVASTATIN CALCIUM
     Dosage: 5 MG, QAM
     Route: 065
  12. BOTOX [Suspect]
     Active Substance: ONABOTULINUMTOXINA
     Indication: MUSCLE SPASTICITY
     Dosage: 200 UNITS, SINGLE
     Route: 030
     Dates: start: 20181220, end: 20181220

REACTIONS (3)
  - Fall [Recovering/Resolving]
  - Femoral neck fracture [Recovering/Resolving]
  - Gait disturbance [Unknown]

NARRATIVE: CASE EVENT DATE: 20181224
